FAERS Safety Report 20573477 (Version 1)
Quarter: 2022Q1

REPORT INFORMATION
  Report Type: Spontaneous
  Country: US (occurrence: None)
  Receive Date: 20220309
  Receipt Date: 20220309
  Transmission Date: 20220423
  Serious: Yes (Hospitalization, Disabling, Other)
  Sender: FDA-Public Use
  Company Number: None

PATIENT
  Age: 88 Year
  Sex: Male
  Weight: 73.48 kg

DRUGS (5)
  1. NEUTROGENA COOLDRY SPORT WITH MICROMESH SUNSCREEN BROAD SPECTRUM SPF 5 [Suspect]
     Active Substance: AVOBENZONE\HOMOSALATE\OCTISALATE\OCTOCRYLENE\OXYBENZONE
     Indication: Prophylaxis
     Dosage: OTHER FREQUENCY : EVERY21HOURS ;?
     Dates: start: 20170501, end: 20190801
  2. NEUTROGENA COOLDRY SPORT WITH MICROMESH SUNSCREEN BROAD SPECTRUM SPF 5 [Suspect]
     Active Substance: AVOBENZONE\HOMOSALATE\OCTISALATE\OCTOCRYLENE\OXYBENZONE
     Indication: Product use issue
  3. NEUTROGENA COOLDRY SPORT WITH MICROMESH SUNSCREEN BROAD SPECTRUM SPF 5 [Suspect]
     Active Substance: AVOBENZONE\HOMOSALATE\OCTISALATE\OCTOCRYLENE\OXYBENZONE
     Indication: Skin cancer
  4. ATORVASTATIN [Concomitant]
     Active Substance: ATORVASTATIN
  5. LIPITOR [Concomitant]
     Active Substance: ATORVASTATIN CALCIUM

REACTIONS (2)
  - Squamous cell carcinoma of skin [None]
  - Product formulation issue [None]

NARRATIVE: CASE EVENT DATE: 20190801
